FAERS Safety Report 9403300 (Version 2)
Quarter: 2013Q3

REPORT INFORMATION
  Report Type: Spontaneous
  Country: BR (occurrence: BR)
  Receive Date: 20130716
  Receipt Date: 20130726
  Transmission Date: 20140515
  Serious: Yes (Other)
  Sender: FDA-Public Use
  Company Number: BR-PFIZER INC-2013206208

PATIENT
  Age: 21 Year
  Sex: Female

DRUGS (2)
  1. FRONTAL XR [Suspect]
     Indication: DEPRESSION
     Dosage: 2 TABLETS (2 MG EACH) A DAY
     Route: 048
     Dates: start: 20130703
  2. FRONTAL XR [Suspect]
     Indication: PANIC REACTION

REACTIONS (4)
  - Presyncope [Unknown]
  - Feeling drunk [Not Recovered/Not Resolved]
  - Hypersomnia [Unknown]
  - Feeling abnormal [Not Recovered/Not Resolved]
